FAERS Safety Report 7482960-8 (Version None)
Quarter: 2011Q2

REPORT INFORMATION
  Report Type: 
  Country: None (occurrence: None)
  Receive Date: 20110516
  Receipt Date: 20110411
  Transmission Date: 20111010
  Serious: No
  Sender: FDA-Public Use
  Company Number: US-BAYER-2011-032358

PATIENT
  Sex: Female
  Weight: 127 kg

DRUGS (9)
  1. GLIMEPIRIDE [Concomitant]
     Dosage: UNK
     Route: 048
  2. LOVASTATIN [Concomitant]
     Route: 048
  3. GLUCOPHAGE [Concomitant]
     Dosage: UNK
     Route: 048
  4. KLOR-CON [Concomitant]
     Dosage: UNK
     Route: 048
  5. ALEVE (CAPLET) [Suspect]
     Indication: ARTHRITIS
     Dosage: 2 DF, QD
     Route: 048
     Dates: start: 20100101
  6. GLYSET [Concomitant]
     Dosage: UNK
     Route: 048
  7. ASPIRIN [Concomitant]
     Dosage: UNK
     Route: 048
  8. AMILORIDE HYDROCHLORIDE [Concomitant]
     Route: 048
  9. FUROSEMIDE [Concomitant]
     Dosage: UNK
     Route: 048

REACTIONS (1)
  - NO ADVERSE EVENT [None]
